FAERS Safety Report 7954662-2 (Version None)
Quarter: 2011Q4

REPORT INFORMATION
  Report Type: 
  Country: None (occurrence: None)
  Receive Date: 20111202
  Receipt Date: 20111201
  Transmission Date: 20120403
  Serious: Yes (Death, Hospitalization)
  Sender: FDA-Public Use
  Company Number: PHFR2011GB006678

PATIENT
  Sex: Male

DRUGS (7)
  1. HYOSCINE [Concomitant]
  2. AMLODIPINE [Concomitant]
  3. OMEPRAZOLE [Concomitant]
  4. IBUPROFEN [Concomitant]
     Indication: BACK PAIN
  5. DEPAKOTE [Concomitant]
     Indication: SCHIZOAFFECTIVE DISORDER
     Dosage: 750 MG, UNK
  6. RAMIPRIL [Concomitant]
     Indication: HYPERTENSION
  7. CLOZARIL [Suspect]
     Indication: MANIA
     Dosage: 400 MG NOCTE
     Route: 048
     Dates: start: 20080418, end: 20111019

REACTIONS (3)
  - OESOPHAGEAL CARCINOMA [None]
  - DYSPHAGIA [None]
  - GENERAL PHYSICAL HEALTH DETERIORATION [None]
